FAERS Safety Report 18687783 (Version 2)
Quarter: 2021Q1

REPORT INFORMATION
  Report Type: Spontaneous
  Country: US (occurrence: US)
  Receive Date: 20201231
  Receipt Date: 20210111
  Transmission Date: 20210419
  Serious: Yes (Other)
  Sender: FDA-Public Use
  Company Number: US-ALEMBIC PHARMACUETICALS LIMITED-2020SCAL000529

PATIENT

DRUGS (3)
  1. ACETAZOLAMIDE. [Suspect]
     Active Substance: ACETAZOLAMIDE
     Indication: PRODUCT USED FOR UNKNOWN INDICATION
     Dosage: UNK
  2. TRAVATAN Z [Concomitant]
     Active Substance: TRAVOPROST
     Dosage: 1 DROP, 0.004%, ONE DROP IN BOTH EYES NIGHTLY)
  3. DORZOLAMIDE + TIMOLOL [Concomitant]
     Indication: DEVELOPMENTAL GLAUCOMA
     Dosage: 1 DROP, BID, COSOPT, AKORN INC., 2?0.5%, ONE DROP IN
     Route: 047

REACTIONS (3)
  - Toxic encephalopathy [Unknown]
  - Paralysis [Unknown]
  - Metabolic function test abnormal [Unknown]
